FAERS Safety Report 5244542-8 (Version None)
Quarter: 2007Q1

REPORT INFORMATION
  Report Type: 
  Country: None (occurrence: None)
  Receive Date: 20061201
  Receipt Date: 20060822
  Transmission Date: 20070707
  Serious: No
  Sender: FDA-Public Use
  Company Number: 2006PV019947

PATIENT
  Age: 50 Year
  Sex: Male
  Weight: 86.1834 kg

DRUGS (4)
  1. BYETTA [Suspect]
     Indication: DIABETES MELLITUS NON-INSULIN-DEPENDENT
     Dosage: 5 MCG;BID;SC
     Route: 058
     Dates: start: 20060801
  2. METAGLIP [Concomitant]
  3. ACIPHEX [Concomitant]
  4. AUGMENTIN '125' [Concomitant]

REACTIONS (5)
  - ANOREXIA [None]
  - BLOOD PRESSURE DECREASED [None]
  - DIZZINESS [None]
  - NAUSEA [None]
  - THIRST DECREASED [None]
